FAERS Safety Report 15698838 (Version 1)
Quarter: 2018Q4

REPORT INFORMATION
  Report Type: Spontaneous
  Country: IL (occurrence: IL)
  Receive Date: 20181207
  Receipt Date: 20181207
  Transmission Date: 20190205
  Serious: Yes (Hospitalization)
  Sender: FDA-Public Use
  Company Number: IL-ELI_LILLY_AND_COMPANY-IL201811013862

PATIENT
  Age: 78 Year
  Sex: Male

DRUGS (1)
  1. FORTEO [Suspect]
     Active Substance: TERIPARATIDE
     Indication: PRODUCT USED FOR UNKNOWN INDICATION
     Dosage: UNK UNK, UNKNOWN
     Route: 065
     Dates: start: 201805, end: 201810

REACTIONS (6)
  - Depression [Recovering/Resolving]
  - Weight decreased [Unknown]
  - Asthenia [Unknown]
  - Mitral valve incompetence [Unknown]
  - Coronary artery disease [Unknown]
  - Aortic valve calcification [Unknown]
